FAERS Safety Report 24001262 (Version 1)
Quarter: 2024Q2

REPORT INFORMATION
  Report Type: Spontaneous
  Country: JP (occurrence: JP)
  Receive Date: 20240621
  Receipt Date: 20240621
  Transmission Date: 20240716
  Serious: Yes (Other)
  Sender: FDA-Public Use
  Company Number: JP-BoehringerIngelheim-2024-BI-033707

PATIENT
  Age: 69 Year
  Sex: Female

DRUGS (5)
  1. NINTEDANIB [Suspect]
     Active Substance: NINTEDANIB
     Indication: Idiopathic interstitial pneumonia
     Dates: start: 202011
  2. NINTEDANIB [Suspect]
     Active Substance: NINTEDANIB
     Indication: Pulmonary fibrosis
  3. NINTEDANIB [Suspect]
     Active Substance: NINTEDANIB
     Indication: Interstitial lung disease
  4. PREDNISOLONE [Concomitant]
     Active Substance: PREDNISOLONE
     Indication: Idiopathic interstitial pneumonia
     Dates: start: 201509
  5. CYCLOPHOSPHAMIDE [Concomitant]
     Active Substance: CYCLOPHOSPHAMIDE
     Indication: Idiopathic interstitial pneumonia
     Dosage: IN TOTAL 10 DOSES
     Route: 042
     Dates: start: 201603

REACTIONS (2)
  - Pulmonary hypertension [Unknown]
  - Interstitial lung disease [Recovering/Resolving]
